FAERS Safety Report 7445443-7 (Version None)
Quarter: 2011Q2

REPORT INFORMATION
  Report Type: 
  Country: None (occurrence: None)
  Receive Date: 20110429
  Receipt Date: 20110419
  Transmission Date: 20111010
  Serious: Yes (Life-Threatening, Hospitalization, Other)
  Sender: FDA-Public Use
  Company Number: JP-PFIZER INC-2011066338

PATIENT
  Age: 67 Year
  Sex: Female

DRUGS (15)
  1. ADRIACIN [Suspect]
     Indication: MYCOSIS FUNGOIDES
     Dosage: 62 MG, EVERY 3 WEEKS
     Route: 041
     Dates: start: 20101228, end: 20110118
  2. GRAN [Suspect]
     Indication: NEUTROPENIA
     Dosage: 75 UG, 1X/DAY
     Route: 058
     Dates: start: 20110106, end: 20110113
  3. PREDONINE [Concomitant]
     Dosage: 100 MG, 2X/DAY
     Route: 048
     Dates: start: 20101228, end: 20110101
  4. MAXIPIME [Concomitant]
     Dosage: 1 G, 2X/DAY
     Dates: start: 20110111, end: 20110118
  5. MAXIPIME [Concomitant]
     Dosage: 2 G, 2X/DAY
     Dates: start: 20110126, end: 20110203
  6. EMEND [Concomitant]
     Dosage: 125 MG, 1X/DAY
     Route: 048
     Dates: start: 20110118, end: 20110121
  7. KYTRIL [Concomitant]
     Dosage: 1 MG, EVERY 3 WEEKS
     Dates: start: 20101228, end: 20110118
  8. GRAN [Suspect]
     Dosage: 75 UG, 1X/DAY
     Route: 058
     Dates: start: 20110123, end: 20110130
  9. CYCLOPHOSPHAMIDE [Suspect]
     Indication: MYCOSIS FUNGOIDES
     Dosage: 925 MG, EVERY 3 WEEKS
     Route: 041
     Dates: start: 20101228, end: 20110118
  10. LYRICA [Concomitant]
     Dosage: 75 MG, 2X/DAY
     Route: 048
     Dates: start: 20101229, end: 20110209
  11. CALONAL [Concomitant]
     Dosage: 400 MG, UNK
     Route: 048
     Dates: start: 20110131, end: 20110204
  12. VINCRISTINE SULFATE [Suspect]
     Indication: MYCOSIS FUNGOIDES
     Dosage: 1.73 MG, EVERY 3 WEEKS
     Route: 041
     Dates: start: 20101228, end: 20110118
  13. MAXIPIME [Concomitant]
     Dosage: 2 G, 2X/DAY
     Dates: start: 20110119, end: 20110119
  14. OMEPRAL [Concomitant]
     Dosage: 20 MG, 1X/DAY
     Route: 048
     Dates: start: 20110118, end: 20110122
  15. ALLELOCK [Concomitant]
     Dosage: 5 MG, 2X/DAY
     Route: 048
     Dates: start: 20110119, end: 20110208

REACTIONS (2)
  - PNEUMOCYSTIS JIROVECI PNEUMONIA [None]
  - FEBRILE NEUTROPENIA [None]
